FAERS Safety Report 7238776-0 (Version None)
Quarter: 2011Q1

REPORT INFORMATION
  Report Type: 
  Country: None (occurrence: None)
  Receive Date: 20110121
  Receipt Date: 20110117
  Transmission Date: 20110831
  Serious: Yes (Other)
  Sender: FDA-Public Use
  Company Number: GR-PFIZER INC-2011011356

PATIENT
  Age: 70 Year
  Sex: Male

DRUGS (2)
  1. SUTENT [Suspect]
     Indication: METASTATIC RENAL CELL CARCINOMA
     Dosage: UNK
     Dates: end: 20100501
  2. ZOLEDRONIC ACID [Concomitant]
     Dosage: UNKNOWN

REACTIONS (3)
  - OSTEONECROSIS OF JAW [None]
  - DRUG INEFFECTIVE [None]
  - PAIN [None]
